FAERS Safety Report 19415797 (Version 2)
Quarter: 2021Q2

REPORT INFORMATION
  Report Type: Report from Study
  Country: None (occurrence: US)
  Receive Date: 20210615
  Receipt Date: 20210621
  Transmission Date: 20210717
  Serious: Yes (Other)
  Sender: FDA-Public Use
  Company Number: US-ABBVIE-21K-163-3945511-00

PATIENT
  Age: 68 Year
  Sex: Female

DRUGS (4)
  1. COVID?19 VACCINE [Concomitant]
     Indication: COVID-19 IMMUNISATION
     Dosage: PFIZER
     Route: 030
  2. LYRICA [Concomitant]
     Active Substance: PREGABALIN
     Indication: ANTIDEPRESSANT THERAPY
  3. GABAPENTIN. [Concomitant]
     Active Substance: GABAPENTIN
     Indication: PRODUCT USED FOR UNKNOWN INDICATION
  4. SKYRIZI [Suspect]
     Active Substance: RISANKIZUMAB-RZAA
     Indication: PSORIASIS
     Route: 058
     Dates: start: 2019, end: 202102

REACTIONS (9)
  - Salivary duct obstruction [Unknown]
  - Asthenia [Recovering/Resolving]
  - Psoriasis [Not Recovered/Not Resolved]
  - Intervertebral disc degeneration [Unknown]
  - Swelling face [Recovering/Resolving]
  - Malaise [Recovering/Resolving]
  - Pain in jaw [Recovering/Resolving]
  - Illness [Unknown]
  - Rash [Unknown]

NARRATIVE: CASE EVENT DATE: 202103
